FAERS Safety Report 9106844 (Version 2)
Quarter: 2013Q1

REPORT INFORMATION
  Report Type: Report from Study
  Country: AU (occurrence: AU)
  Receive Date: 20130221
  Receipt Date: 20130305
  Transmission Date: 20140127
  Serious: Yes (Hospitalization)
  Sender: FDA-Public Use
  Company Number: AU-BRISTOL-MYERS SQUIBB COMPANY-17380254

PATIENT
  Age: 56 Year
  Sex: Male
  Weight: 80 kg

DRUGS (9)
  1. CARBOPLATIN [Suspect]
     Indication: NON-SMALL CELL LUNG CANCER
     Dosage: LAST DOSE:16JAN2013
     Route: 042
     Dates: start: 20130116
  2. PACLITAXEL [Suspect]
     Indication: NON-SMALL CELL LUNG CANCER
     Dosage: LAST DOSE:16JAN2013
     Route: 042
     Dates: start: 20130116
  3. BEVACIZUMAB [Suspect]
     Indication: NON-SMALL CELL LUNG CANCER
     Dosage: LAST DOSE:16JAN2013
     Route: 042
     Dates: start: 20130116
  4. COLOXYL + SENNA [Concomitant]
  5. XYLOCAINE VISCOUS [Concomitant]
  6. DEXAMETHASONE [Concomitant]
  7. OLMESARTAN MEDOXOMIL [Concomitant]
  8. METHYLDOPA [Concomitant]
  9. MYLANTA [Concomitant]

REACTIONS (2)
  - Dysphagia [Recovering/Resolving]
  - Oesophageal candidiasis [Recovering/Resolving]
